FAERS Safety Report 6298022-1 (Version None)
Quarter: 2009Q3

REPORT INFORMATION
  Report Type: 
  Country: None (occurrence: None)
  Receive Date: 20090805
  Receipt Date: 20090729
  Transmission Date: 20100115
  Serious: Yes (Death)
  Sender: FDA-Public Use
  Company Number: IT-BAYER-200926881GPV

PATIENT
  Age: 66 Year
  Sex: Male

DRUGS (7)
  1. ASPIRIN [Suspect]
     Indication: PROPHYLAXIS
     Dosage: TOTAL DAILY DOSE: 100 MG  UNIT DOSE: 100 MG
     Route: 048
     Dates: start: 20090201, end: 20090611
  2. SINTROM [Suspect]
     Indication: PROPHYLAXIS
     Route: 048
     Dates: start: 20090201, end: 20090611
  3. LANSOPRAZOLE [Concomitant]
     Route: 048
  4. DAFLON [Concomitant]
     Indication: PROPHYLAXIS
     Dosage: TOTAL DAILY DOSE: 1000 MG
     Route: 048
     Dates: start: 20090501, end: 20090611
  5. DILATREND [Concomitant]
     Indication: MYOCARDIAL ISCHAEMIA
     Route: 048
     Dates: start: 20090201, end: 20090611
  6. VALPRESSION [Concomitant]
     Indication: HYPERTENSION
     Dosage: TOTAL DAILY DOSE: 320 MG
     Route: 048
     Dates: start: 20090201, end: 20090611
  7. MODURETIC 5-50 [Concomitant]
     Indication: HYPERTENSION
     Dosage: TOTAL DAILY DOSE: 10 MG
     Route: 048
     Dates: start: 20090201, end: 20090611

REACTIONS (4)
  - ACUTE RESPIRATORY FAILURE [None]
  - DECEREBRATION [None]
  - PUPILS UNEQUAL [None]
  - SUBARACHNOID HAEMORRHAGE [None]
